FAERS Safety Report 6344836-9 (Version None)
Quarter: 2009Q3

REPORT INFORMATION
  Report Type: 
  Country: None (occurrence: None)
  Receive Date: 20090904
  Receipt Date: 20090901
  Transmission Date: 20100115
  Serious: Yes (Other)
  Sender: FDA-Public Use
  Company Number: 1000007158

PATIENT
  Sex: Male

DRUGS (1)
  1. CELEXA [Suspect]
     Dosage: ORAL
     Route: 048
     Dates: start: 20070101

REACTIONS (5)
  - ABNORMAL DREAMS [None]
  - HOMICIDAL IDEATION [None]
  - NIGHTMARE [None]
  - RAPID EYE MOVEMENTS SLEEP ABNORMAL [None]
  - SELF INJURIOUS BEHAVIOUR [None]
